FAERS Safety Report 7619534-1 (Version None)
Quarter: 2011Q3

REPORT INFORMATION
  Report Type: 
  Country: None (occurrence: None)
  Receive Date: 20110719
  Receipt Date: 20110706
  Transmission Date: 20111222
  Serious: Yes (Life-Threatening)
  Sender: FDA-Public Use
  Company Number: FR-JNJFOC-20110603831

PATIENT
  Age: 71 Year
  Sex: Male

DRUGS (3)
  1. METHOTREXATE [Concomitant]
     Indication: PSORIASIS
     Route: 048
     Dates: start: 20070101, end: 20090101
  2. STELARA [Suspect]
     Indication: PSORIASIS
     Dosage: A TOTAL OF 3 INJECTIONS
     Route: 058
     Dates: start: 20100510, end: 20100910
  3. REMICADE [Suspect]
     Indication: PSORIASIS
     Route: 042
     Dates: start: 20070301, end: 20100301

REACTIONS (1)
  - PROSTATE CANCER [None]
